FAERS Safety Report 9239492 (Version 2)
Quarter: 2013Q3

REPORT INFORMATION
  Report Type: Spontaneous
  Country: US (occurrence: US)
  Receive Date: 20130418
  Receipt Date: 20130731
  Transmission Date: 20140515
  Serious: Yes (Death)
  Sender: FDA-Public Use
  Company Number: US-B.I. PHARMACEUTICALS,INC./RIDGEFIELD-2013-BI-09885BP

PATIENT
  Age: 80 Year
  Sex: Male

DRUGS (8)
  1. PRADAXA [Suspect]
     Indication: ATRIAL FIBRILLATION
     Dosage: 300 MG
     Route: 048
     Dates: start: 2011
  2. AMIODARONE [Concomitant]
  3. AMLODIPINE [Concomitant]
  4. COREG [Concomitant]
  5. LASIX [Concomitant]
  6. LISINOPRIL [Concomitant]
  7. PLAVIX [Concomitant]
  8. POTASSIUM [Concomitant]

REACTIONS (1)
  - Cardiac failure congestive [Fatal]
